FAERS Safety Report 10195688 (Version 3)
Quarter: 2015Q1

REPORT INFORMATION
  Report Type: Report from Study
  Country: FR (occurrence: FR)
  Receive Date: 20140527
  Receipt Date: 20150216
  Transmission Date: 20150720
  Serious: Yes (Hospitalization)
  Sender: FDA-Public Use
  Company Number: FR-ROCHE-1161438

PATIENT
  Age: 54 Year
  Sex: Female

DRUGS (9)
  1. ABATACEPT [Concomitant]
     Active Substance: ABATACEPT
  2. TOCILIZUMAB [Suspect]
     Active Substance: TOCILIZUMAB
     Indication: RHEUMATOID ARTHRITIS
     Route: 042
     Dates: start: 20100719
  3. CORTANCYL [Concomitant]
     Active Substance: PREDNISONE
     Dosage: PER DAY
     Route: 065
  4. PARACETAMOL [Concomitant]
     Active Substance: ACETAMINOPHEN
     Route: 065
     Dates: start: 20071229
  5. RITUXIMAB [Suspect]
     Active Substance: RITUXIMAB
     Indication: RHEUMATOID ARTHRITIS
     Dosage: 24/OCT/2006, 20/SEP/2007, 04/OCT/2007
     Route: 042
     Dates: start: 20061009
  6. LEFLUNOMIDE. [Concomitant]
     Active Substance: LEFLUNOMIDE
  7. DEXTROPROPOXYPHEN [Concomitant]
  8. METHOTREXATE [Concomitant]
     Active Substance: METHOTREXATE
  9. CORTANCYL [Concomitant]
     Active Substance: PREDNISONE
     Dosage: PER DAY
     Route: 065

REACTIONS (9)
  - Bronchitis [Recovered/Resolved]
  - Acarodermatitis [Not Recovered/Not Resolved]
  - Skin lesion [Not Recovered/Not Resolved]
  - Hypertension [Not Recovered/Not Resolved]
  - Hypercholesterolaemia [Not Recovered/Not Resolved]
  - Bronchitis [Recovered/Resolved]
  - Pemphigoid [Not Recovered/Not Resolved]
  - Drug hypersensitivity [Not Recovered/Not Resolved]
  - Vitreous detachment [Not Recovered/Not Resolved]

NARRATIVE: CASE EVENT DATE: 200712
